FAERS Safety Report 23657747 (Version 1)
Quarter: 2024Q1

REPORT INFORMATION
  Report Type: Spontaneous
  Country: US (occurrence: None)
  Receive Date: 20240320
  Receipt Date: 20240320
  Transmission Date: 20240410
  Serious: Yes (Other)
  Sender: FDA-Public Use
  Company Number: None

PATIENT
  Age: 53 Year
  Sex: Female
  Weight: 99 kg

DRUGS (16)
  1. OLANZAPINE [Suspect]
     Active Substance: OLANZAPINE
     Indication: Bipolar disorder
     Dosage: 30 TABLETS AT BEDTIME ORAL
     Route: 048
     Dates: start: 20240301
  2. MIRTAZAPINE [Concomitant]
     Active Substance: MIRTAZAPINE
  3. ATORVASTATIN [Concomitant]
     Active Substance: ATORVASTATIN
  4. COUMADIN [Concomitant]
     Active Substance: WARFARIN SODIUM
  5. ABILIFY [Concomitant]
     Active Substance: ARIPIPRAZOLE
  6. PRAZOSIN [Concomitant]
     Active Substance: PRAZOSIN
  7. PANTOPRAZOLE [Concomitant]
     Active Substance: PANTOPRAZOLE
  8. LAMOTRIGINE [Concomitant]
     Active Substance: LAMOTRIGINE
  9. GABAPENTIN [Concomitant]
     Active Substance: GABAPENTIN
  10. FLUOXETINE [Concomitant]
     Active Substance: FLUOXETINE HYDROCHLORIDE
  11. clomipromine [Concomitant]
  12. alanzapine [Concomitant]
  13. treseba [Concomitant]
  14. OZEMPIC [Concomitant]
     Active Substance: SEMAGLUTIDE
  15. IRON [Concomitant]
     Active Substance: IRON
  16. MAGNESIUM [Concomitant]
     Active Substance: MAGNESIUM

REACTIONS (3)
  - Sleep talking [None]
  - Daydreaming [None]
  - Abnormal behaviour [None]

NARRATIVE: CASE EVENT DATE: 20240320
